FAERS Safety Report 6526416-5 (Version None)
Quarter: 2010Q1

REPORT INFORMATION
  Report Type: 
  Country: None (occurrence: None)
  Receive Date: 20100105
  Receipt Date: 20091224
  Transmission Date: 20100710
  Serious: Yes (Hospitalization)
  Sender: FDA-Public Use
  Company Number: IN-ELI_LILLY_AND_COMPANY-IN200912005441

PATIENT
  Sex: Female
  Weight: 56 kg

DRUGS (7)
  1. GEMCITABINE HCL [Suspect]
     Indication: BREAST CANCER METASTATIC
     Dosage: 1000 MG/M2, DAYS 1+8 EVERY 3 WEEKS
     Route: 042
     Dates: start: 20091215
  2. VINFLUNINE [Suspect]
     Indication: BREAST CANCER METASTATIC
     Dosage: 320 MG/M2, DAY 1 EVERY 3 WEEKS
     Route: 042
     Dates: start: 20091215
  3. ONDANSETRON [Concomitant]
     Dates: start: 20091216, end: 20091218
  4. DUPHALAC [Concomitant]
     Dates: start: 20091216, end: 20091218
  5. AVIL [Concomitant]
     Dates: start: 20091215, end: 20091215
  6. GRANISETRON [Concomitant]
     Dates: start: 20091215, end: 20091215
  7. CHYMORAL [Concomitant]
     Dates: start: 20091216, end: 20091218

REACTIONS (4)
  - ABDOMINAL PAIN [None]
  - ASTHENIA [None]
  - BLOOD PRESSURE SYSTOLIC INCREASED [None]
  - NEUTROPENIA [None]
